FAERS Safety Report 18945253 (Version 1)
Quarter: 2021Q1

REPORT INFORMATION
  Report Type: Report from Study
  Country: CN (occurrence: CN)
  Receive Date: 20210226
  Receipt Date: 20210226
  Transmission Date: 20210420
  Serious: Yes (Hospitalization)
  Sender: FDA-Public Use
  Company Number: CN-DSJP-DSJ-2021-105579

PATIENT
  Age: 68 Year
  Sex: Male
  Weight: 70 kg

DRUGS (31)
  1. TROXERUTIN [Concomitant]
     Active Substance: TROXERUTIN
     Indication: REDUCTION OF INCREASED INTRACRANIAL PRESSURE
     Dosage: 360 MG, QD
     Route: 041
     Dates: start: 20210208, end: 20210220
  2. OLMESARTAN?AMLODIPINE [Suspect]
     Active Substance: AMLODIPINE BESYLATE\OLMESARTAN MEDOXOMIL
     Indication: ESSENTIAL HYPERTENSION
     Dosage: 20/5MG, DAY
     Route: 048
     Dates: start: 20201224, end: 20210206
  3. SODIUM AESCINATE [Concomitant]
     Active Substance: SODIUM ESCINATE
     Indication: DEHYDRATION
  4. AO LI XI [Concomitant]
     Indication: CENTRAL NERVOUS SYSTEM STIMULATION
     Dosage: 0.3 G, QD
     Route: 030
     Dates: start: 20210206, end: 20210220
  5. MERISLON [Concomitant]
     Active Substance: BETAHISTINE MESILATE
     Indication: DIZZINESS
     Dosage: 6 MG, TID
     Route: 048
     Dates: start: 20210208, end: 20210220
  6. DUPHALAC [Concomitant]
     Active Substance: LACTULOSE
     Indication: GASTROINTESTINAL DISORDER
     Dosage: 1 DF, TID
     Route: 048
     Dates: start: 20210212, end: 20210220
  7. NIFEDIPINE. [Concomitant]
     Active Substance: NIFEDIPINE
     Indication: BLOOD PRESSURE MANAGEMENT
     Dosage: 30 MG, QD
     Route: 048
     Dates: start: 20210221
  8. ATORVASTATIN CALCIUM. [Concomitant]
     Active Substance: ATORVASTATIN CALCIUM
     Indication: ARTERIOSCLEROSIS
  9. ACARBOSE. [Concomitant]
     Active Substance: ACARBOSE
     Indication: BLOOD GLUCOSE ABNORMAL
     Dosage: 50 MG, TID
     Route: 048
     Dates: start: 20210213, end: 20210220
  10. ACARBOSE. [Concomitant]
     Active Substance: ACARBOSE
     Indication: BLOOD GLUCOSE ABNORMAL
     Dosage: 50 MG, QD
     Route: 048
     Dates: start: 20210221
  11. NALOXONE HYDROCHLORIDE. [Concomitant]
     Active Substance: NALOXONE HYDROCHLORIDE
     Indication: ANAESTHESIA
     Dosage: 2.4 MG, QD
     Route: 041
     Dates: start: 20210206, end: 20210207
  12. ATORVASTATIN CALCIUM. [Concomitant]
     Active Substance: ATORVASTATIN CALCIUM
     Indication: LIPIDS
     Dosage: 20 MG, QN
     Route: 048
     Dates: start: 20210206, end: 20210220
  13. GU LI YA [Concomitant]
     Indication: REDUCTION OF INCREASED INTRACRANIAL PRESSURE
     Dosage: 250 ML, QD
     Route: 041
     Dates: start: 20210208, end: 20210220
  14. PIRACETAM AND SODIUM CHLORIDE [Concomitant]
     Active Substance: PIRACETAM
     Indication: REDUCTION OF INCREASED INTRACRANIAL PRESSURE
     Dosage: 20 MG, QD
     Route: 041
     Dates: start: 20210206, end: 20210207
  15. PIRACETAM AND SODIUM CHLORIDE [Concomitant]
     Active Substance: PIRACETAM
     Indication: DEHYDRATION
  16. BAYASPIRIN [Concomitant]
     Active Substance: ASPIRIN
     Indication: ANTIPLATELET THERAPY
     Dosage: 100MG, QN
     Route: 048
     Dates: start: 20210207, end: 20210220
  17. SODIUM CHLORIDE. [Concomitant]
     Active Substance: SODIUM CHLORIDE
     Indication: CENTRAL NERVOUS SYSTEM STIMULATION
     Dosage: 125 MG, BID
     Route: 041
     Dates: start: 20210207, end: 20210211
  18. TROXERUTIN [Concomitant]
     Active Substance: TROXERUTIN
     Indication: DEHYDRATION
  19. XUESHUANTONG [Concomitant]
     Active Substance: HERBALS\PANAX NOTOGINSENG ROOT EXTRACT
     Indication: VOLUME BLOOD INCREASED
     Dosage: 0.25 G, QD
     Route: 041
     Dates: start: 20210207, end: 20210211
  20. CEFPROZIL. [Concomitant]
     Active Substance: CEFPROZIL
     Indication: UPPER RESPIRATORY TRACT INFECTION
     Dosage: 250 MG, BID
     Route: 048
     Dates: start: 20210208, end: 20210220
  21. SODIUM AESCINATE [Concomitant]
     Active Substance: SODIUM ESCINATE
     Indication: REDUCTION OF INCREASED INTRACRANIAL PRESSURE
     Dosage: 10 MG, QD
     Route: 041
     Dates: start: 20210206, end: 20210207
  22. AI XIN YI NING [Concomitant]
     Indication: UPPER RESPIRATORY TRACT INFECTION
     Dosage: 20 MG, QD
     Route: 041
     Dates: start: 20210206, end: 20210220
  23. SODIUM CHLORIDE. [Concomitant]
     Active Substance: SODIUM CHLORIDE
     Indication: CENTRAL NERVOUS SYSTEM STIMULATION
     Dosage: 125 MG, BID
     Route: 041
     Dates: start: 20210212, end: 20210220
  24. XUESHUANTONG [Concomitant]
     Active Substance: HERBALS\PANAX NOTOGINSENG ROOT EXTRACT
     Indication: COLLATERAL CIRCULATION
  25. GU LI YA [Concomitant]
     Indication: DEHYDRATION
  26. BUTYLPHTHALIDE [Concomitant]
     Active Substance: BUTYLPHTHALIDE
     Indication: CENTRAL NERVOUS SYSTEM STIMULATION
     Dosage: 200 MG, TID
     Route: 048
     Dates: start: 20210221
  27. AMLODIPINE BESYLATE. [Concomitant]
     Active Substance: AMLODIPINE BESYLATE
     Indication: BLOOD PRESSURE MANAGEMENT
     Dosage: 5 MG, QD
     Route: 048
     Dates: start: 20210206, end: 20210220
  28. BUTYLPHTHALIDE [Concomitant]
     Active Substance: BUTYLPHTHALIDE
     Indication: CENTRAL NERVOUS SYSTEM STIMULATION
     Dosage: 125 MG, QD
     Route: 041
     Dates: start: 20210212, end: 20210220
  29. XUESHUANTONG [Concomitant]
     Active Substance: HERBALS\PANAX NOTOGINSENG ROOT EXTRACT
     Indication: PERIPHERAL VENOUS DISEASE
  30. METHYCOBAL [Concomitant]
     Active Substance: METHYLCOBALAMIN
     Indication: CENTRAL NERVOUS SYSTEM STIMULATION
     Dosage: 0.5 MG, TID
     Route: 048
     Dates: start: 20210208, end: 20210220
  31. BUTYLPHTHALIDE [Concomitant]
     Active Substance: BUTYLPHTHALIDE
     Indication: COLLATERAL CIRCULATION
     Dosage: 125 MG, BID
     Route: 041
     Dates: start: 20210207, end: 20210211

REACTIONS (3)
  - Upper respiratory tract infection [Recovering/Resolving]
  - Type 2 diabetes mellitus [Recovering/Resolving]
  - Cerebral infarction [Recovering/Resolving]

NARRATIVE: CASE EVENT DATE: 20210206
